FAERS Safety Report 20891190 (Version 1)
Quarter: 2022Q2

REPORT INFORMATION
  Report Type: Spontaneous
  Country: FR (occurrence: FR)
  Receive Date: 20220530
  Receipt Date: 20220530
  Transmission Date: 20220720
  Serious: Yes (Hospitalization, Other)
  Sender: FDA-Public Use
  Company Number: None

PATIENT
  Age: 75 Year
  Sex: Female
  Weight: 98 kg

DRUGS (2)
  1. CLINDAMYCIN PHOSPHATE [Suspect]
     Active Substance: CLINDAMYCIN PHOSPHATE
     Indication: Staphylococcal infection
     Dosage: 600 MG, DAILY
     Route: 042
     Dates: start: 20220425, end: 20220502
  2. DAPTOMYCIN [Suspect]
     Active Substance: DAPTOMYCIN
     Indication: Staphylococcal infection
     Dosage: 850 MG, DAILY
     Route: 042
     Dates: start: 20220425, end: 20220502

REACTIONS (2)
  - Acute kidney injury [Recovering/Resolving]
  - Diarrhoea [Recovering/Resolving]

NARRATIVE: CASE EVENT DATE: 20220429
